FAERS Safety Report 7554055-6 (Version None)
Quarter: 2011Q2

REPORT INFORMATION
  Report Type: 
  Country: None (occurrence: None)
  Receive Date: 20110617
  Receipt Date: 20110606
  Transmission Date: 20111010
  Serious: Yes (Other)
  Sender: FDA-Public Use
  Company Number: US-ENDO PHARMACEUTICALS INC.-OPER20110123

PATIENT
  Sex: Female

DRUGS (2)
  1. OPANA ER [Suspect]
     Route: 048
     Dates: start: 20110531, end: 20110604
  2. OPANA ER [Suspect]
     Indication: PAIN
     Route: 048
     Dates: start: 20110531, end: 20110531

REACTIONS (7)
  - OEDEMA MOUTH [None]
  - OEDEMA PERIPHERAL [None]
  - INAPPROPRIATE SCHEDULE OF DRUG ADMINISTRATION [None]
  - DRUG INEFFECTIVE [None]
  - ERYTHEMA [None]
  - CHEST PAIN [None]
  - PRURITUS [None]
